FAERS Safety Report 7409719-1 (Version None)
Quarter: 2011Q2

REPORT INFORMATION
  Report Type: 
  Country: None (occurrence: None)
  Receive Date: 20110407
  Receipt Date: 20110407
  Transmission Date: 20111010
  Serious: Yes (Life-Threatening)
  Sender: FDA-Public Use
  Company Number: None

PATIENT
  Sex: Male
  Weight: 95.2554 kg

DRUGS (1)
  1. VANCOMYCIN [Suspect]
     Dosage: 1250MG IV
     Route: 042

REACTIONS (4)
  - CARDIO-RESPIRATORY ARREST [None]
  - HYPOTENSION [None]
  - INCORRECT DRUG ADMINISTRATION RATE [None]
  - BRADYCARDIA [None]
